FAERS Safety Report 10744742 (Version 2)
Quarter: 2015Q2

REPORT INFORMATION
  Report Type: Spontaneous
  Country: US (occurrence: None)
  Receive Date: 20150120
  Receipt Date: 20150420
  Transmission Date: 20150821
  Serious: No
  Sender: FDA-Public Use
  Company Number: AEGR000841

PATIENT
  Age: 51 Year
  Sex: Female
  Weight: 111.1 kg

DRUGS (1)
  1. JUXTAPID [Suspect]
     Active Substance: LOMITAPIDE MESYLATE
     Indication: TYPE IIA HYPERLIPIDAEMIA
     Route: 048
     Dates: start: 20140820

REACTIONS (3)
  - Malaise [None]
  - Abnormal dreams [None]
  - Weight decreased [None]

NARRATIVE: CASE EVENT DATE: 2014
